FAERS Safety Report 6119551-7 (Version None)
Quarter: 2009Q1

REPORT INFORMATION
  Report Type: 
  Country: None (occurrence: None)
  Receive Date: 20090316
  Receipt Date: 20090312
  Transmission Date: 20090719
  Serious: Yes (Other)
  Sender: FDA-Public Use
  Company Number: B0558446A

PATIENT
  Age: 11 Year
  Sex: Female

DRUGS (2)
  1. RELENZA [Suspect]
     Indication: INFLUENZA
     Dosage: 10MG TWICE PER DAY
     Route: 055
     Dates: start: 20090126, end: 20090130
  2. CALONAL [Concomitant]
     Route: 048
     Dates: start: 20090126

REACTIONS (3)
  - HALLUCINATION [None]
  - PYREXIA [None]
  - SLEEP DISORDER [None]
